FAERS Safety Report 15676297 (Version 2)
Quarter: 2019Q2

REPORT INFORMATION
  Report Type: Report from Study
  Country: CA (occurrence: CA)
  Receive Date: 20181130
  Receipt Date: 20190412
  Transmission Date: 20190711
  Serious: Yes (Other)
  Sender: FDA-Public Use
  Company Number: CA-SHIRE-CA201835951

PATIENT

DRUGS (2)
  1. LASIX [Concomitant]
     Active Substance: FUROSEMIDE
     Indication: PRODUCT USED FOR UNKNOWN INDICATION
  2. VPRIV [Suspect]
     Active Substance: VELAGLUCERASE ALFA
     Indication: PRODUCT USED FOR UNKNOWN INDICATION
     Dosage: 20 ML OR 5 VIALS
     Route: 042
     Dates: start: 20160212

REACTIONS (2)
  - Cardiac failure congestive [Unknown]
  - Weight increased [Unknown]
